FAERS Safety Report 13762338 (Version 1)
Quarter: 2017Q3

REPORT INFORMATION
  Report Type: Spontaneous
  Country: US (occurrence: US)
  Receive Date: 20170717
  Receipt Date: 20170717
  Transmission Date: 20171127
  Serious: Yes (Other)
  Sender: FDA-Public Use
  Company Number: None

PATIENT
  Age: 37 Year
  Sex: Female
  Weight: 52.16 kg

DRUGS (2)
  1. COMPAZINE [Suspect]
     Active Substance: PROCHLORPERAZINE MALEATE
     Indication: MIGRAINE
     Dates: start: 20161220, end: 20161220
  2. IB PROFIEN [Concomitant]

REACTIONS (13)
  - Muscle twitching [None]
  - Motor dysfunction [None]
  - Feeling jittery [None]
  - Akathisia [None]
  - Restlessness [None]
  - Disorientation [None]
  - Agitation [None]
  - Pollakiuria [None]
  - Psychomotor hyperactivity [None]
  - Dysphonia [None]
  - Feeling abnormal [None]
  - Confusional state [None]
  - Sleep disorder [None]

NARRATIVE: CASE EVENT DATE: 20161220
